FAERS Safety Report 8223015-4 (Version None)
Quarter: 2012Q1

REPORT INFORMATION
  Report Type: 
  Country: None (occurrence: None)
  Receive Date: 20120320
  Receipt Date: 20111220
  Transmission Date: 20120608
  Serious: Yes (Hospitalization, Other)
  Sender: FDA-Public Use
  Company Number: FR-GILEAD-2011-0046461

PATIENT
  Sex: Female

DRUGS (9)
  1. LAMIVUDINE (EPIVIR HBV) [Suspect]
     Indication: HIV INFECTION
  2. RALTEGRAVIR [Suspect]
     Indication: HIV INFECTION
  3. BACTRIM [Concomitant]
     Indication: PROPHYLAXIS
     Dosage: 2 DF, PRN
     Dates: start: 20110104
  4. COMPLEX B                          /06442901/ [Concomitant]
     Indication: PROPHYLAXIS
     Dosage: 2 DF, QD
     Dates: start: 20110207
  5. CEFTRIAXONE [Concomitant]
     Indication: OTITIS EXTERNA
     Dosage: 2 G, UNK
     Dates: start: 20110628, end: 20110701
  6. TENOFOVIR DISOPROXIL FUMARATE [Suspect]
     Indication: HIV INFECTION
  7. OMEPRAZOLE [Concomitant]
     Indication: GASTRITIS PROPHYLAXIS
     Dosage: 20 MG, PRN
     Dates: start: 20110601
  8. FERROUS SULFATE TAB [Concomitant]
     Indication: ANAEMIA
     Dosage: 40 MG, BID
     Dates: start: 20110207
  9. CIPROFLOXACIN [Concomitant]
     Indication: OTITIS EXTERNA
     Dosage: 400 MG, PRN
     Dates: start: 20110628, end: 20110828

REACTIONS (3)
  - LEUKOPENIA [None]
  - FEBRILE NEUTROPENIA [None]
  - NEUTROPENIA [None]
